FAERS Safety Report 8834862 (Version 2)
Quarter: 2013Q1

REPORT INFORMATION
  Report Type: Spontaneous
  Country: FR (occurrence: None)
  Receive Date: 20121009
  Receipt Date: 20121108
  Transmission Date: 20140127
  Serious: Yes (Other)
  Sender: FDA-Public Use
  Company Number: 2012100012

PATIENT
  Age: 39 Year
  Sex: Female

DRUGS (4)
  1. TALOXA [Suspect]
     Indication: PRODUCT USED FOR UNKNOWN INDICATION
     Route: 048
     Dates: start: 2008
  2. DEPAKINE (VALPROATE SODIUM) [Concomitant]
  3. ALEPSAL (CAFFEINE, PHENOBARBITAL) [Concomitant]
  4. ZONEGRAN (ZONISAMIDE) [Concomitant]

REACTIONS (9)
  - Somnolence [None]
  - Dysarthria [None]
  - Nausea [None]
  - Vertigo [None]
  - Asthenia [None]
  - Weight decreased [None]
  - Decreased appetite [None]
  - Product dosage form issue [None]
  - Irritability [None]
